FAERS Safety Report 14185261 (Version 1)
Quarter: 2017Q4

REPORT INFORMATION
  Report Type: Report from Study
  Country: ZA (occurrence: ZA)
  Receive Date: 20171113
  Receipt Date: 20171113
  Transmission Date: 20180321
  Serious: Yes (Hospitalization)
  Sender: FDA-Public Use
  Company Number: PHHY2017ZA163064

PATIENT
  Sex: Female

DRUGS (1)
  1. ZOMEVEK [Suspect]
     Active Substance: VALSARTAN
     Indication: HYPERTENSION
     Dosage: 160 MG, UNK
     Route: 048

REACTIONS (5)
  - Diarrhoea [Unknown]
  - Syncope [Unknown]
  - Upper limb fracture [Unknown]
  - Abdominal pain upper [Unknown]
  - Fall [Unknown]
